FAERS Safety Report 12632396 (Version 2)
Quarter: 2016Q3

REPORT INFORMATION
  Report Type: Spontaneous
  Country: US (occurrence: US)
  Receive Date: 20160808
  Receipt Date: 20160808
  Transmission Date: 20161109
  Serious: No
  Sender: FDA-Public Use
  Company Number: US-BEH-2016062717

PATIENT
  Sex: Female
  Weight: 126 kg

DRUGS (23)
  1. L-M-X [Concomitant]
  2. LEXAPRO [Concomitant]
     Active Substance: ESCITALOPRAM OXALATE
  3. TRIAMCINOLONE ACETONIDE. [Concomitant]
     Active Substance: TRIAMCINOLONE ACETONIDE
  4. LYRICA [Concomitant]
     Active Substance: PREGABALIN
  5. DIPHENHYDRAMINE. [Concomitant]
     Active Substance: DIPHENHYDRAMINE
  6. CENTRUM SILVER [Concomitant]
     Active Substance: MINERALS\VITAMINS
  7. FOLIC ACID. [Concomitant]
     Active Substance: FOLIC ACID
  8. VITAMIN D [Concomitant]
     Active Substance: CHOLECALCIFEROL
  9. LIPITOR [Concomitant]
     Active Substance: ATORVASTATIN CALCIUM
  10. POTASSIUM CL [Concomitant]
     Active Substance: POTASSIUM CHLORIDE
  11. METOPROLOL. [Concomitant]
     Active Substance: METOPROLOL
  12. LOSARTAN. [Concomitant]
     Active Substance: LOSARTAN
  13. DILTIAZEM. [Concomitant]
     Active Substance: DILTIAZEM
  14. ASPIRIN EC [Concomitant]
     Active Substance: ASPIRIN
  15. METFORMIN [Concomitant]
     Active Substance: METFORMIN HYDROCHLORIDE
  16. ACETAMINOPHEN. [Concomitant]
     Active Substance: ACETAMINOPHEN
  17. FISH OIL [Concomitant]
     Active Substance: FISH OIL
  18. LEVOTHYROXINE. [Concomitant]
     Active Substance: LEVOTHYROXINE
  19. EPIPEN [Concomitant]
     Active Substance: EPINEPHRINE
  20. METHOTREXATE. [Concomitant]
     Active Substance: METHOTREXATE
  21. CYCLOBENZAPRINE [Concomitant]
     Active Substance: CYCLOBENZAPRINE
  22. FUROSEMIDE. [Concomitant]
     Active Substance: FUROSEMIDE
  23. HIZENTRA [Suspect]
     Active Substance: HUMAN IMMUNOGLOBULIN G
     Indication: IMMUNODEFICIENCY COMMON VARIABLE
     Route: 058

REACTIONS (2)
  - Bronchitis [Unknown]
  - Infusion site pruritus [Unknown]
